FAERS Safety Report 19661214 (Version 1)
Quarter: 2021Q3

REPORT INFORMATION
  Report Type: Spontaneous
  Country: JP (occurrence: JP)
  Receive Date: 20210805
  Receipt Date: 20210805
  Transmission Date: 20211014
  Serious: Yes (Other)
  Sender: FDA-Public Use
  Company Number: JP-PFIZER INC-202100955442

PATIENT
  Sex: Male

DRUGS (3)
  1. NIFEDIPINE. [Concomitant]
     Active Substance: NIFEDIPINE
     Indication: HYPERTENSION
     Dosage: UNK
  2. CELECOXIB. [Suspect]
     Active Substance: CELECOXIB
     Indication: ANALGESIC THERAPY
     Dosage: UNK
     Route: 048
  3. AZILVA [Concomitant]
     Active Substance: AZILSARTAN KAMEDOXOMIL
     Indication: HYPERTENSION
     Dosage: UNK

REACTIONS (10)
  - Angina pectoris [Unknown]
  - Syncope [Unknown]
  - Myocardial infarction [Unknown]
  - Hypertension [Unknown]
  - Seizure [Unknown]
  - Headache [Unknown]
  - Angina unstable [Unknown]
  - Arteriospasm coronary [Unknown]
  - Chest pain [Unknown]
  - Muscle twitching [Unknown]

NARRATIVE: CASE EVENT DATE: 202106
